FAERS Safety Report 24257294 (Version 4)
Quarter: 2024Q4

REPORT INFORMATION
  Report Type: Spontaneous
  Country: US (occurrence: US)
  Receive Date: 20240828
  Receipt Date: 20241213
  Transmission Date: 20250115
  Serious: Yes (Hospitalization, Other)
  Sender: BRISTOL-MYERS SQUIBB COMPANY
  Company Number: US-BRISTOL-MYERS SQUIBB COMPANY-2024-134170

PATIENT
  Age: 70 Year
  Sex: Male

DRUGS (4)
  1. REVLIMID [Suspect]
     Active Substance: LENALIDOMIDE
     Indication: Pain
     Dosage: TAKE 1 CAP BY MOUTH W/WATER AFTER MEAL ON DAYS 1-21, 7 DAYS OFF. TAKE W/DEXAMETHASONE ON DEXAMETHASO
     Route: 048
  2. REVLIMID [Suspect]
     Active Substance: LENALIDOMIDE
     Dates: start: 20240827
  3. REVLIMID [Suspect]
     Active Substance: LENALIDOMIDE
     Dosage: FREQUENCY: TAKE 1 CAP BY MOUTH W/ WATER 1HR AFTER MEAL ON DAYS 1-21, 7 DAYS OFF (W/ DEXAMETHASONE ON
     Route: 048
  4. DEXAMETHASONE [Concomitant]
     Active Substance: DEXAMETHASONE
     Indication: Plasma cell myeloma

REACTIONS (4)
  - Cerebrovascular accident [Recovering/Resolving]
  - Spinal disorder [Recovering/Resolving]
  - Off label use [Unknown]
  - Radiculopathy [Recovering/Resolving]
